FAERS Safety Report 6099968-X (Version None)
Quarter: 2009Q1

REPORT INFORMATION
  Report Type: 
  Country: None (occurrence: None)
  Receive Date: 20090303
  Receipt Date: 20090225
  Transmission Date: 20090719
  Serious: Yes (Hospitalization)
  Sender: FDA-Public Use
  Company Number: PHHO2009US02282

PATIENT
  Sex: Female
  Weight: 50 kg

DRUGS (9)
  1. EXELON [Suspect]
     Indication: DEMENTIA ALZHEIMER'S TYPE
     Dosage: 10 CM2/18MG
     Route: 062
     Dates: start: 20080213, end: 20090212
  2. EXELON [Suspect]
     Dosage: NO TREATMENT
  3. BLINDED NO TREATMENT RECEIVED NOMED [Suspect]
     Dosage: NO TREATMENT
  4. PROZAC [Concomitant]
     Indication: ANXIETY
     Dosage: UNK
  5. ZYPREXA [Concomitant]
     Indication: DELUSION
     Dosage: 15 MG,
     Route: 048
  6. ZYPREXA [Concomitant]
     Dosage: 10 MG
  7. ASPIRIN [Concomitant]
     Dosage: UNK
  8. NAMENDA [Concomitant]
  9. CALCITRATE [Concomitant]

REACTIONS (2)
  - ADRENAL INSUFFICIENCY [None]
  - HYPOTENSION [None]
